FAERS Safety Report 8003505-X (Version None)
Quarter: 2011Q4

REPORT INFORMATION
  Report Type: 
  Country: None (occurrence: None)
  Receive Date: 20111222
  Receipt Date: 20111220
  Transmission Date: 20120403
  Serious: No
  Sender: FDA-Public Use
  Company Number: US-PFIZER INC-2011309428

PATIENT
  Age: 70 Year
  Sex: Female
  Weight: 63.039 kg

DRUGS (2)
  1. ADVIL PM [Suspect]
     Indication: INSOMNIA
     Dosage: 400 MG, DAILY
     Dates: start: 20110101
  2. PAXIL [Concomitant]
     Indication: SERUM SEROTONIN DECREASED
     Dosage: 10 MG, DAILY
     Dates: start: 19960101

REACTIONS (4)
  - INSOMNIA [None]
  - SOMNOLENCE [None]
  - ANXIETY [None]
  - HYPOAESTHESIA [None]
